FAERS Safety Report 17533575 (Version 1)
Quarter: 2020Q1

REPORT INFORMATION
  Report Type: Spontaneous
  Country: ES (occurrence: ES)
  Receive Date: 20200312
  Receipt Date: 20200312
  Transmission Date: 20200409
  Serious: Yes (Life-Threatening, Other)
  Sender: FDA-Public Use
  Company Number: ES-PFIZER INC-2020105907

PATIENT
  Age: 86 Year
  Sex: Female
  Weight: 46 kg

DRUGS (6)
  1. ATORVASTATIN CALCIUM. [Suspect]
     Active Substance: ATORVASTATIN CALCIUM
     Indication: CARDIOVASCULAR DISORDER
     Dosage: 80 MG, 1X/DAY
     Route: 048
     Dates: start: 202002
  2. ACETYLSALICYLIC ACID [Concomitant]
     Active Substance: ASPIRIN
     Dosage: 100 MG, 1X/DAY
     Route: 048
     Dates: start: 2019
  3. OMEPRAZOL [Concomitant]
     Active Substance: OMEPRAZOLE
     Dosage: 20 MG, 1X/DAY
     Route: 048
     Dates: start: 2019
  4. URSODEOXYCHOLIC AC [Concomitant]
     Dosage: 300 MG, UNK
     Route: 048
     Dates: start: 2019
  5. RIVAROXABAN [Concomitant]
     Active Substance: RIVAROXABAN
     Dosage: 15 MG, UNK
     Route: 048
     Dates: start: 2019
  6. ENALAPRIL + HIDROCLOROTIAZIDA [Concomitant]
     Active Substance: ENALAPRIL MALEATE\HYDROCHLOROTHIAZIDE
     Dosage: ENALAPRIL 20MG  HIDROCLOROTIAZIDA 12,5 MG
     Route: 048
     Dates: start: 2019

REACTIONS (6)
  - Renal failure [Recovering/Resolving]
  - Sepsis [Recovering/Resolving]
  - Abdominal pain [Recovering/Resolving]
  - Hepatitis [Recovering/Resolving]
  - Colitis [Recovering/Resolving]
  - Diarrhoea [Recovering/Resolving]

NARRATIVE: CASE EVENT DATE: 202002
